FAERS Safety Report 5370702-1 (Version None)
Quarter: 2007Q2

REPORT INFORMATION
  Report Type: 
  Country: None (occurrence: None)
  Receive Date: 20070618
  Receipt Date: 20070131
  Transmission Date: 20071010
  Serious: Yes (Life-Threatening, Hospitalization)
  Sender: FDA-Public Use
  Company Number: PHEH2006US13154

PATIENT
  Age: 70 Year
  Sex: Female

DRUGS (2)
  1. GLEEVEC [Suspect]
     Indication: CHRONIC MYELOID LEUKAEMIA
     Dosage: ORAL
     Route: 048
  2. HYDROXYUREA [Concomitant]

REACTIONS (3)
  - BLOOD CREATININE INCREASED [None]
  - HAEMODIALYSIS [None]
  - RENAL FAILURE ACUTE [None]
